FAERS Safety Report 19318942 (Version 1)
Quarter: 2021Q2

REPORT INFORMATION
  Report Type: Spontaneous
  Country: US (occurrence: US)
  Receive Date: 20210527
  Receipt Date: 20210527
  Transmission Date: 20210717
  Serious: Yes (Disabling)
  Sender: FDA-Public Use
  Company Number: None

PATIENT
  Age: 31 Year
  Sex: Female
  Weight: 72 kg

DRUGS (1)
  1. CIPROFLOXACIN. [Suspect]
     Active Substance: CIPROFLOXACIN
     Indication: URINARY TRACT INFECTION
     Dosage: ?          QUANTITY:3 CAPSULE(S);?
     Route: 048
     Dates: start: 20200801, end: 20200802

REACTIONS (15)
  - Inflammation [None]
  - Pain in extremity [None]
  - Muscle spasms [None]
  - Arthralgia [None]
  - Arthropathy [None]
  - Neck pain [None]
  - Chest pain [None]
  - Hypoaesthesia [None]
  - Tendon disorder [None]
  - Burning sensation [None]
  - Eye pain [None]
  - Vision blurred [None]
  - Back pain [None]
  - Gait disturbance [None]
  - Ligament disorder [None]

NARRATIVE: CASE EVENT DATE: 20200802
